FAERS Safety Report 8291860 (Version 2)
Quarter: 2018Q4

REPORT INFORMATION
  Report Type: Spontaneous
  Country: SE (occurrence: SE)
  Receive Date: 20111215
  Receipt Date: 20181107
  Transmission Date: 20190205
  Serious: Yes (Death, Life-Threatening)
  Sender: FDA-Public Use
  Company Number: SE-AMGEN-SWESP2011065948

PATIENT
  Age: 34 Year
  Sex: Female

DRUGS (3)
  1. ENBREL [Suspect]
     Active Substance: ETANERCEPT
     Dosage: UNK
     Route: 065
  2. PREDNISOLON [Concomitant]
     Active Substance: PREDNISOLONE
     Dosage: UNK
  3. ENBREL [Suspect]
     Active Substance: ETANERCEPT
     Indication: PRODUCT USED FOR UNKNOWN INDICATION
     Dosage: 50 MG, WEEKLY
     Route: 058
     Dates: start: 19990826

REACTIONS (8)
  - Myocarditis [Fatal]
  - Cardiopulmonary failure [Fatal]
  - Pulmonary granuloma [Fatal]
  - Splenic granuloma [Fatal]
  - Cardiac granuloma [Fatal]
  - Granuloma [Fatal]
  - Pericarditis [Fatal]
  - Pulmonary oedema [Fatal]

NARRATIVE: CASE EVENT DATE: 20101003
